FAERS Safety Report 9305862 (Version 3)
Quarter: 2013Q2

REPORT INFORMATION
  Report Type: Spontaneous
  Country: DE (occurrence: None)
  Receive Date: 20130515
  Receipt Date: 20130611
  Transmission Date: 20140414
  Serious: Yes (Other)
  Sender: FDA-Public Use
  Company Number: 2013036038

PATIENT
  Age: 39 Year
  Sex: Male

DRUGS (4)
  1. PRIVIGEN [Suspect]
     Indication: MILLER FISHER SYNDROME
     Dosage: 40 G INTRAVENOUS (NOT OTHERWISE SPECIFIED)?
     Route: 042
     Dates: start: 20130422, end: 20130422
  2. BISOPROLOL (BISOPROLOL) [Concomitant]
  3. HCT (HYDROCHLOROTHIAZIDE) [Concomitant]
  4. RAMIPRIL (RAMIPRIL) [Concomitant]

REACTIONS (7)
  - Haemoglobin decreased [None]
  - Haemolysis [None]
  - Nausea [None]
  - Vomiting [None]
  - Chills [None]
  - Abdominal pain upper [None]
  - Off label use [None]
